FAERS Safety Report 6450920-1 (Version None)
Quarter: 2009Q4

REPORT INFORMATION
  Report Type: 
  Country: None (occurrence: None)
  Receive Date: 20091123
  Receipt Date: 20091117
  Transmission Date: 20100525
  Serious: Yes (Other)
  Sender: FDA-Public Use
  Company Number: A0782958A

PATIENT
  Age: 36 Year
  Sex: Female
  Weight: 104.5 kg

DRUGS (7)
  1. AVANDIA [Suspect]
     Indication: DIABETES MELLITUS
     Dosage: 4MG TWICE PER DAY
     Route: 048
     Dates: end: 20070515
  2. PRINIVIL [Concomitant]
     Dates: start: 20070215
  3. LISINOPRIL [Concomitant]
  4. ZANTAC [Concomitant]
     Indication: ILL-DEFINED DISORDER
  5. LASIX [Concomitant]
  6. ALDACTONE [Concomitant]
  7. CARDIZEM [Concomitant]
     Dates: end: 20070215

REACTIONS (10)
  - ARRHYTHMIA [None]
  - DYSPNOEA [None]
  - FOOT FRACTURE [None]
  - HEPATIC ENZYME INCREASED [None]
  - HEPATIC STEATOSIS [None]
  - INTERVERTEBRAL DISC PROTRUSION [None]
  - LIVER INJURY [None]
  - OEDEMA [None]
  - OSTEOPENIA [None]
  - TACHYCARDIA [None]
